FAERS Safety Report 18229668 (Version 2)
Quarter: 2020Q4

REPORT INFORMATION
  Report Type: Report from Study
  Country: PE (occurrence: PE)
  Receive Date: 20200903
  Receipt Date: 20201005
  Transmission Date: 20210113
  Serious: Yes (Death, Hospitalization)
  Sender: FDA-Public Use
  Company Number: PE-SEATTLE GENETICS-2020SGN03889

PATIENT
  Age: 36 Year
  Sex: Female

DRUGS (1)
  1. BRENTUXIMAB VEDOTIN [Suspect]
     Active Substance: BRENTUXIMAB VEDOTIN
     Indication: HODGKIN^S DISEASE REFRACTORY
     Dosage: 130 MILLIGRAM
     Route: 042
     Dates: start: 20200423, end: 20200915

REACTIONS (3)
  - Myocardial infarction [Fatal]
  - Subcutaneous emphysema [Recovering/Resolving]
  - Hodgkin^s disease [Fatal]

NARRATIVE: CASE EVENT DATE: 20200927
